FAERS Safety Report 6167815-3 (Version None)
Quarter: 2009Q2

REPORT INFORMATION
  Report Type: 
  Country: None (occurrence: None)
  Receive Date: 20090427
  Receipt Date: 20090420
  Transmission Date: 20091009
  Serious: Yes (Hospitalization)
  Sender: FDA-Public Use
  Company Number: US-JNJFOC-20090402316

PATIENT
  Sex: Female
  Weight: 45.36 kg

DRUGS (7)
  1. FENTANYL TRANSDERMAL SYSTEM [Suspect]
     Indication: PAIN
     Route: 062
  2. FENTANYL TRANSDERMAL SYSTEM [Suspect]
     Indication: ABDOMINAL PAIN
     Route: 062
  3. UNSPECIFIED ANTIBIOTIC [Suspect]
     Indication: URINARY TRACT INFECTION
     Route: 048
  4. TYLOX [Concomitant]
     Indication: BREAKTHROUGH PAIN
     Dosage: 5/500 EVERY 12 HOURS AS NEEDED
     Route: 048
  5. LISINOPRIL [Concomitant]
     Indication: HYPERTENSION
     Route: 048
  6. KLONOPIN [Concomitant]
     Indication: ANXIETY
     Route: 048
  7. PREVACID [Concomitant]
     Indication: DYSPEPSIA
     Route: 048

REACTIONS (7)
  - DECREASED APPETITE [None]
  - EMOTIONAL DISTRESS [None]
  - HYPERSENSITIVITY [None]
  - INCORRECT DRUG ADMINISTRATION DURATION [None]
  - PAIN [None]
  - URINARY TRACT INFECTION [None]
  - WRONG TECHNIQUE IN DRUG USAGE PROCESS [None]
